FAERS Safety Report 9220926 (Version 2)
Quarter: 2013Q2

REPORT INFORMATION
  Report Type: Spontaneous
  Country: DE (occurrence: DE)
  Receive Date: 20130409
  Receipt Date: 20130423
  Transmission Date: 20140414
  Serious: Yes (Other)
  Sender: FDA-Public Use
  Company Number: DE-ELI_LILLY_AND_COMPANY-DE201303009846

PATIENT
  Sex: Female

DRUGS (4)
  1. CYMBALTA [Suspect]
     Indication: DEPRESSION
     Dosage: 30 MG, UNKNOWN
     Route: 048
     Dates: start: 20130321, end: 20130328
  2. ANASTROZOLE [Concomitant]
  3. TAVOR [Concomitant]
  4. TRASTUZUMAB [Concomitant]
     Indication: NEOPLASM MALIGNANT

REACTIONS (3)
  - Ocular icterus [Recovered/Resolved]
  - Jaundice [Recovered/Resolved]
  - Blood bilirubin abnormal [Unknown]
